FAERS Safety Report 4817370-2 (Version None)
Quarter: 2005Q4

REPORT INFORMATION
  Report Type: 
  Country: None (occurrence: None)
  Receive Date: 20051031
  Receipt Date: 20051021
  Transmission Date: 20060501
  Serious: Yes (Death)
  Sender: FDA-Public Use
  Company Number: 2005-07-0764

PATIENT
  Sex: Female

DRUGS (1)
  1. NITRO-DUR [Suspect]
     Dosage: TRANSDERMAL
     Route: 062

REACTIONS (1)
  - MYOCARDIAL INFARCTION [None]
